FAERS Safety Report 7979657-4 (Version None)
Quarter: 2011Q4

REPORT INFORMATION
  Report Type: 
  Country: None (occurrence: None)
  Receive Date: 20111214
  Receipt Date: 20111208
  Transmission Date: 20120403
  Serious: Yes (Hospitalization)
  Sender: FDA-Public Use
  Company Number: DE-EISAI INC-E2090-01842-SPO-DE

PATIENT
  Sex: Male
  Weight: 97.8 kg

DRUGS (3)
  1. VALPROIC ACID [Concomitant]
     Indication: EPILEPSY
     Dosage: 1500 MG DAILY
     Route: 048
     Dates: end: 20111023
  2. RISPERIDONE [Concomitant]
     Indication: EPILEPSY
     Dosage: 2 MG DAILY
     Route: 048
  3. ZONEGRAN [Suspect]
     Indication: EPILEPSY
     Dosage: 400 MG DAILY
     Route: 048
     Dates: start: 20110601, end: 20110930

REACTIONS (3)
  - DISTURBANCE IN ATTENTION [None]
  - ACTIVITIES OF DAILY LIVING IMPAIRED [None]
  - CEREBRAL DISORDER [None]
